FAERS Safety Report 16201947 (Version 1)
Quarter: 2019Q2

REPORT INFORMATION
  Report Type: Spontaneous
  Country: KR (occurrence: KR)
  Receive Date: 20190416
  Receipt Date: 20190416
  Transmission Date: 20190711
  Serious: Yes (Other)
  Sender: FDA-Public Use
  Company Number: KR-TEVA-2019-KR-1038375

PATIENT
  Age: 5 Year
  Sex: Female

DRUGS (19)
  1. VINCRISTINE [Suspect]
     Active Substance: VINCRISTINE
     Indication: DIFFUSE LARGE B-CELL LYMPHOMA
     Dosage: RECEIVED 10 CYCLES OF CHEMOTHERAPY FOR 10 MONTHS
     Route: 065
  2. CIDOFOVIR. [Suspect]
     Active Substance: CIDOFOVIR
     Dosage: MAINTENANCE DOSE
     Route: 042
  3. SOLU-MEDROL [Suspect]
     Active Substance: METHYLPREDNISOLONE SODIUM SUCCINATE
     Dosage: 22.5 MG/KG DAILY;
     Route: 065
  4. TACROLIMUS. [Suspect]
     Active Substance: TACROLIMUS
     Dosage: TACROLIMUS DOSAGE WAS AGAIN REDUCED TO A GOAL TROUGH LEVEL OF 2 NG/ML
     Route: 065
  5. MYCOPHENOLATE MOFETIL. [Suspect]
     Active Substance: MYCOPHENOLATE MOFETIL
     Indication: IMMUNOSUPPRESSANT DRUG THERAPY
     Dosage: 1200 MG/M2 DAILY;
     Route: 065
  6. DOXORUBICIN [Suspect]
     Active Substance: DOXORUBICIN
     Indication: DIFFUSE LARGE B-CELL LYMPHOMA
     Dosage: RECEIVED 10 CYCLES OF CHEMOTHERAPY FOR 10 MONTHS
     Route: 065
  7. TACROLIMUS. [Suspect]
     Active Substance: TACROLIMUS
     Dosage: TACROLIMUS DOSAGES WAS TITRATED FOR A TROUGH LEVEL OF 10-15 NG/ML
     Route: 065
  8. RITUXIMAB. [Suspect]
     Active Substance: RITUXIMAB
     Indication: DIFFUSE LARGE B-CELL LYMPHOMA
     Dosage: RECEIVED 10 CYCLES OF CHEMOTHERAPY
     Route: 065
  9. SOLU-MEDROL [Suspect]
     Active Substance: METHYLPREDNISOLONE SODIUM SUCCINATE
     Indication: IMMUNOSUPPRESSANT DRUG THERAPY
     Dosage: IN THE OPERATION ROOM
     Route: 065
  10. CYCLOPHOSPHAMIDE. [Suspect]
     Active Substance: CYCLOPHOSPHAMIDE
     Indication: DIFFUSE LARGE B-CELL LYMPHOMA
     Dosage: RECEIVED 10 CYCLES OF CHEMOTHERAPY FOR 10 MONTHS
     Route: 065
  11. LEFLUNOMIDE. [Suspect]
     Active Substance: LEFLUNOMIDE
     Indication: BK VIRUS INFECTION
     Dosage: 50 MILLIGRAM DAILY;
     Route: 048
  12. LEFLUNOMIDE. [Suspect]
     Active Substance: LEFLUNOMIDE
     Dosage: 10 MILLIGRAM DAILY;
     Route: 048
  13. TACROLIMUS. [Suspect]
     Active Substance: TACROLIMUS
     Indication: IMMUNOSUPPRESSANT DRUG THERAPY
     Dosage: .3 MG/KG DAILY;
     Route: 065
  14. TACROLIMUS. [Suspect]
     Active Substance: TACROLIMUS
     Dosage: TACROLIMUS DOSE INCREASED TO A TROUGH LEVEL OF 14.3 NG/ML
     Route: 065
  15. PREDNISONE. [Suspect]
     Active Substance: PREDNISONE
     Indication: DIFFUSE LARGE B-CELL LYMPHOMA
     Dosage: RECEIVED 10 CYCLES OF CHEMOTHERAPY FOR 10 MONTHS
     Route: 065
  16. BASILIXIMAB [Suspect]
     Active Substance: BASILIXIMAB
     Indication: IMMUNOSUPPRESSANT DRUG THERAPY
     Route: 065
  17. SOLU-MEDROL [Suspect]
     Active Substance: METHYLPREDNISOLONE SODIUM SUCCINATE
     Dosage: 1 MG/KG DAILY; FOR ONE MONTH
     Route: 065
  18. TACROLIMUS. [Suspect]
     Active Substance: TACROLIMUS
     Dosage: TACROLIMUS DOSAGE WAS REDUCED WITH A GOAL TROUGH LEVEL OF ABOUT 3-5 NG/ML
     Route: 065
  19. CIDOFOVIR. [Suspect]
     Active Substance: CIDOFOVIR
     Indication: BK VIRUS INFECTION
     Dosage: INDUCTION DOSE
     Route: 042

REACTIONS (10)
  - Central nervous system viral infection [Unknown]
  - Posterior reversible encephalopathy syndrome [Unknown]
  - BK virus infection [Unknown]
  - Acute kidney injury [Unknown]
  - Seizure [Unknown]
  - Toxicity to various agents [Unknown]
  - Polyomavirus-associated nephropathy [Unknown]
  - End stage renal disease [Unknown]
  - Cytopenia [Recovering/Resolving]
  - Gastrointestinal disorder [Unknown]
